FAERS Safety Report 9937691 (Version 2)
Quarter: 2016Q3

REPORT INFORMATION
  Report Type: Report from Study
  Country: US (occurrence: US)
  Receive Date: 20140303
  Receipt Date: 20160831
  Transmission Date: 20161109
  Serious: Yes (Hospitalization, Other)
  Sender: FDA-Public Use
  Company Number: US-ROCHE-1353719

PATIENT
  Sex: Female
  Weight: 77.2 kg

DRUGS (23)
  1. KENALOG [Concomitant]
     Active Substance: TRIAMCINOLONE ACETONIDE
  2. PREDNISONE. [Concomitant]
     Active Substance: PREDNISONE
     Route: 048
  3. SPIRIVA [Concomitant]
     Active Substance: TIOTROPIUM BROMIDE MONOHYDRATE
     Route: 045
  4. CETRIZINE [Concomitant]
     Active Substance: CETIRIZINE HYDROCHLORIDE
     Route: 065
  5. XOLAIR [Suspect]
     Active Substance: OMALIZUMAB
     Indication: RHINITIS ALLERGIC
  6. ADVAIR HFA [Concomitant]
     Active Substance: FLUTICASONE PROPIONATE\SALMETEROL XINAFOATE
     Dosage: 230-21 MG
     Route: 045
  7. CYMBALTA [Concomitant]
     Active Substance: DULOXETINE HYDROCHLORIDE
     Route: 065
  8. ATROVENT [Concomitant]
     Active Substance: IPRATROPIUM BROMIDE
  9. ALBUTEROL. [Concomitant]
     Active Substance: ALBUTEROL
     Route: 045
  10. FOSAMAX [Concomitant]
     Active Substance: ALENDRONATE SODIUM
     Route: 048
  11. TAMIFLU [Suspect]
     Active Substance: OSELTAMIVIR PHOSPHATE
     Indication: PRODUCT USED FOR UNKNOWN INDICATION
     Route: 048
  12. VICODIN [Concomitant]
     Active Substance: ACETAMINOPHEN\HYDROCODONE BITARTRATE
     Route: 065
  13. ZYRTEC [Concomitant]
     Active Substance: CETIRIZINE HYDROCHLORIDE
     Route: 048
  14. XOLAIR [Suspect]
     Active Substance: OMALIZUMAB
     Indication: ASTHMA
     Route: 058
     Dates: start: 201106, end: 201412
  15. FLONASE (UNITED STATES) [Concomitant]
     Route: 045
  16. FLOVENT HFA [Concomitant]
     Active Substance: FLUTICASONE PROPIONATE
     Dosage: 2 PUFFS 2 TIMES A DAY
     Route: 045
  17. MAXAIR [Concomitant]
     Active Substance: PIRBUTEROL ACETATE
     Dosage: 2 PUFFS 4-6 HOURS A DAY
     Route: 045
  18. TYLENOL [Concomitant]
     Active Substance: ACETAMINOPHEN
     Dosage: 2 TABS 3 TIMES A DAY
     Route: 048
  19. ZYFLO [Concomitant]
     Active Substance: ZILEUTON
  20. PREDNISONE. [Concomitant]
     Active Substance: PREDNISONE
     Route: 048
  21. PATADAY [Concomitant]
     Active Substance: OLOPATADINE HYDROCHLORIDE
     Route: 045
  22. PULMICORT TURBUHALER [Concomitant]
     Active Substance: BUDESONIDE
     Dosage: 0.5/2 MG, 1 VIAL TWICE DAILY
     Route: 045
  23. ZITHROMAX [Concomitant]
     Active Substance: AZITHROMYCIN DIHYDRATE
     Route: 048

REACTIONS (21)
  - Nausea [Unknown]
  - Palpitations [Unknown]
  - Chronic obstructive pulmonary disease [Unknown]
  - Tremor [Unknown]
  - Ear discomfort [Unknown]
  - Tinnitus [Unknown]
  - Asthma [Unknown]
  - Fatigue [Unknown]
  - Nasal polyps [Unknown]
  - Vasomotor rhinitis [Unknown]
  - Headache [Unknown]
  - Adrenal insufficiency [Unknown]
  - Rhinorrhoea [Unknown]
  - Paranasal sinus discomfort [Unknown]
  - Conjunctivitis allergic [Unknown]
  - Paraesthesia [Unknown]
  - Dry skin [Unknown]
  - Vomiting [Unknown]
  - Eye allergy [Unknown]
  - Ear pain [Unknown]
  - Pruritus [Unknown]
